FAERS Safety Report 16211433 (Version 2)
Quarter: 2019Q3

REPORT INFORMATION
  Report Type: Spontaneous
  Country: US (occurrence: US)
  Receive Date: 20190418
  Receipt Date: 20190709
  Transmission Date: 20191004
  Serious: No
  Sender: FDA-Public Use
  Company Number: US-BIOGEN-2019BI00725692

PATIENT
  Age: 47 Year
  Sex: Female

DRUGS (1)
  1. TYSABRI [Suspect]
     Active Substance: NATALIZUMAB
     Indication: MULTIPLE SCLEROSIS
     Route: 042
     Dates: start: 20190214

REACTIONS (7)
  - Headache [Unknown]
  - Hunger [Unknown]
  - Feeling cold [Unknown]
  - Tremor [Unknown]
  - Nausea [Unknown]
  - Pain of skin [Unknown]
  - Feeling hot [Unknown]

NARRATIVE: CASE EVENT DATE: 20190411
